FAERS Safety Report 7704718-4 (Version None)
Quarter: 2011Q3

REPORT INFORMATION
  Report Type: 
  Country: None (occurrence: None)
  Receive Date: 20110823
  Receipt Date: 20110815
  Transmission Date: 20111222
  Serious: Yes (Other)
  Sender: FDA-Public Use
  Company Number: PHHY2011ES74250

PATIENT
  Age: 65 Year
  Sex: Male

DRUGS (1)
  1. HEPARIN [Suspect]
     Indication: THROMBOSIS
     Route: 042

REACTIONS (3)
  - STATUS EPILEPTICUS [None]
  - NEUROLOGICAL DECOMPENSATION [None]
  - HAEMORRHAGE INTRACRANIAL [None]
